FAERS Safety Report 6892939-2 (Version None)
Quarter: 2010Q3

REPORT INFORMATION
  Report Type: 
  Country: None (occurrence: None)
  Receive Date: 20100731
  Receipt Date: 20081118
  Transmission Date: 20110219
  Serious: Yes (Other)
  Sender: FDA-Public Use
  Company Number: US-PFIZER INC-2008088887

PATIENT
  Sex: Male
  Weight: 100.7 kg

DRUGS (1)
  1. CAMPTOSAR [Suspect]
     Indication: COLORECTAL CANCER
     Route: 042

REACTIONS (3)
  - DYSPNOEA [None]
  - FLUSHING [None]
  - HYPERSENSITIVITY [None]
